FAERS Safety Report 7435258-8 (Version None)
Quarter: 2011Q2

REPORT INFORMATION
  Report Type: 
  Country: None (occurrence: None)
  Receive Date: 20110425
  Receipt Date: 20110412
  Transmission Date: 20111010
  Serious: Yes (Other)
  Sender: FDA-Public Use
  Company Number: PHHY2011US30827

PATIENT
  Age: 36 Year
  Sex: Female

DRUGS (5)
  1. MYFORTIC [Suspect]
     Indication: RENAL TRANSPLANT
  2. PREDNISONE [Concomitant]
     Indication: IMMUNOSUPPRESSION
  3. CYCLOSPORINE [Suspect]
     Indication: PANCREAS TRANSPLANT
  4. MYFORTIC [Suspect]
     Indication: PANCREAS TRANSPLANT
  5. CYCLOSPORINE [Suspect]
     Indication: RENAL TRANSPLANT

REACTIONS (9)
  - BLOOD CREATININE INCREASED [None]
  - PYREXIA [None]
  - RENAL TRANSPLANT TORSION [None]
  - ABDOMINAL PAIN [None]
  - URINE OUTPUT DECREASED [None]
  - VOMITING [None]
  - RENAL NECROSIS [None]
  - NAUSEA [None]
  - INFLAMMATION [None]
